FAERS Safety Report 12325566 (Version 2)
Quarter: 2016Q3

REPORT INFORMATION
  Report Type: Spontaneous
  Country: JP (occurrence: JP)
  Receive Date: 20160503
  Receipt Date: 20160906
  Transmission Date: 20161109
  Serious: Yes (Hospitalization)
  Sender: FDA-Public Use
  Company Number: JP-ROCHE-1749421

PATIENT
  Age: 16 Day
  Sex: Female
  Weight: 2.57 kg

DRUGS (5)
  1. VALIXA [Suspect]
     Active Substance: VALGANCICLOVIR
     Route: 048
  2. DENOSINE (JAPAN) [Suspect]
     Active Substance: GANCICLOVIR
     Indication: CONGENITAL CYTOMEGALOVIRUS INFECTION
     Route: 041
  3. VALIXA [Suspect]
     Active Substance: VALGANCICLOVIR
     Dosage: DOSE INCREASED
     Route: 048
     Dates: start: 20160311, end: 20160408
  4. VALIXA [Suspect]
     Active Substance: VALGANCICLOVIR
     Indication: CONGENITAL CYTOMEGALOVIRUS INFECTION
     Route: 048
     Dates: start: 20160205
  5. VALIXA [Suspect]
     Active Substance: VALGANCICLOVIR
     Route: 048
     Dates: start: 20160205

REACTIONS (2)
  - Hyperkalaemia [Not Recovered/Not Resolved]
  - Off label use [Unknown]

NARRATIVE: CASE EVENT DATE: 20160205
